FAERS Safety Report 9038910 (Version 1)
Quarter: 2013Q1

REPORT INFORMATION
  Report Type: Spontaneous
  Country: US (occurrence: None)
  Receive Date: 20130123
  Receipt Date: 20130123
  Transmission Date: 20140127
  Serious: Yes (Hospitalization, Disabling, Other)
  Sender: FDA-Public Use
  Company Number: None

PATIENT
  Sex: Male
  Weight: 77.11 kg

DRUGS (1)
  1. DEPAKOTE [Suspect]

REACTIONS (11)
  - Tremor [None]
  - Depression [None]
  - Memory impairment [None]
  - Balance disorder [None]
  - Incontinence [None]
  - Fall [None]
  - Clavicle fracture [None]
  - Concussion [None]
  - Hip fracture [None]
  - Gait disturbance [None]
  - Walking aid user [None]
